FAERS Safety Report 22590605 (Version 1)
Quarter: 2023Q2

REPORT INFORMATION
  Report Type: Spontaneous
  Country: US (occurrence: None)
  Receive Date: 20230610
  Receipt Date: 20230610
  Transmission Date: 20230721
  Serious: Yes (Life-Threatening, Hospitalization, Disabling, Other)
  Sender: FDA-Public Use
  Company Number: None

PATIENT
  Age: 73 Year
  Sex: Female
  Weight: 58.5 kg

DRUGS (4)
  1. KEYTRUDA [Suspect]
     Active Substance: PEMBROLIZUMAB
     Indication: Triple negative breast cancer
     Dosage: OTHER FREQUENCY : 1 X EVERY 3 WEEKS;?
     Route: 042
     Dates: start: 20220810, end: 20230209
  2. HYDROCORTISONE [Concomitant]
     Active Substance: HYDROCORTISONE
  3. VITAMIN B COMPLEX [Concomitant]
     Active Substance: CYANOCOBALAMIN\DEXPANTHENOL\NIACINAMIDE\PYRIDOXINE HYDROCHLORIDE\RIBOFLAVIN 5^-PHOSPHATE SODIUM\THIA
  4. C [Concomitant]

REACTIONS (12)
  - Fatigue [None]
  - Decreased appetite [None]
  - Paralysis [None]
  - Visual impairment [None]
  - Loss of consciousness [None]
  - Fall [None]
  - Head injury [None]
  - Dysstasia [None]
  - Adrenocortical insufficiency acute [None]
  - Oedema peripheral [None]
  - Weight increased [None]
  - Anxiety [None]

NARRATIVE: CASE EVENT DATE: 20230309
